FAERS Safety Report 17841675 (Version 1)
Quarter: 2020Q2

REPORT INFORMATION
  Report Type: Spontaneous
  Country: CA (occurrence: CA)
  Receive Date: 20200529
  Receipt Date: 20200529
  Transmission Date: 20200714
  Serious: Yes (Hospitalization)
  Sender: FDA-Public Use
  Company Number: CA-ROCHE-2605158

PATIENT
  Age: 69 Year
  Sex: Female
  Weight: 96 kg

DRUGS (13)
  1. SYNTHROID [Suspect]
     Active Substance: LEVOTHYROXINE SODIUM
     Indication: PRODUCT USED FOR UNKNOWN INDICATION
     Route: 065
  2. CALCIUM GLUCONATE. [Concomitant]
     Active Substance: CALCIUM GLUCONATE
  3. ZOCOR [Concomitant]
     Active Substance: SIMVASTATIN
  4. LIPITOR [Suspect]
     Active Substance: ATORVASTATIN CALCIUM
     Indication: PRODUCT USED FOR UNKNOWN INDICATION
     Route: 065
  5. DELATESTRYL [Concomitant]
     Active Substance: TESTOSTERONE ENANTHATE
     Route: 030
  6. XANAX [Concomitant]
     Active Substance: ALPRAZOLAM
  7. APO-NADOL [Suspect]
     Active Substance: NADOLOL
     Indication: PRODUCT USED FOR UNKNOWN INDICATION
     Route: 065
  8. CHOLECALCIFEROL [Concomitant]
     Active Substance: CHOLECALCIFEROL
  9. VENLAFAXINE HYDROCHLORIDE. [Concomitant]
     Active Substance: VENLAFAXINE HYDROCHLORIDE
  10. ACTEMRA [Suspect]
     Active Substance: TOCILIZUMAB
     Indication: RHEUMATOID ARTHRITIS
     Route: 042
  11. ESTRADIOL. [Concomitant]
     Active Substance: ESTRADIOL
  12. PERINDOPRIL [Suspect]
     Active Substance: PERINDOPRIL
     Indication: PRODUCT USED FOR UNKNOWN INDICATION
     Route: 065
  13. COZAAR [Concomitant]
     Active Substance: LOSARTAN POTASSIUM
     Route: 065

REACTIONS (4)
  - Dyspnoea [Not Recovered/Not Resolved]
  - Atrial fibrillation [Not Recovered/Not Resolved]
  - Cardiac failure congestive [Not Recovered/Not Resolved]
  - Gait disturbance [Not Recovered/Not Resolved]
